FAERS Safety Report 15657871 (Version 3)
Quarter: 2019Q1

REPORT INFORMATION
  Report Type: Spontaneous
  Country: US (occurrence: US)
  Receive Date: 20181126
  Receipt Date: 20190123
  Transmission Date: 20190417
  Serious: No
  Sender: FDA-Public Use
  Company Number: US-009507513-1811USA003222

PATIENT
  Age: 24 Year
  Sex: Female
  Weight: 70.75 kg

DRUGS (1)
  1. NEXPLANON [Suspect]
     Active Substance: ETONOGESTREL
     Indication: CONTRACEPTION
     Dosage: 1 IMPLANT FOR 3 YEARS
     Route: 059
     Dates: start: 20181106, end: 20181106

REACTIONS (3)
  - Complication of device insertion [Not Recovered/Not Resolved]
  - Product quality issue [Unknown]
  - Product packaging issue [Unknown]

NARRATIVE: CASE EVENT DATE: 20181106
